FAERS Safety Report 8019731-X (Version None)
Quarter: 2012Q1

REPORT INFORMATION
  Report Type: 
  Country: None (occurrence: None)
  Receive Date: 20120103
  Receipt Date: 20111206
  Transmission Date: 20120608
  Serious: Yes (Other)
  Sender: FDA-Public Use
  Company Number: GB-GLAXOSMITHKLINE-B0767461A

PATIENT
  Sex: Male
  Weight: 73 kg

DRUGS (5)
  1. STEROID [Concomitant]
  2. RANITIDINE [Concomitant]
  3. FLUTICASONE PROPIONATE/SALMETEROL [Concomitant]
     Dosage: 1PUFF TWICE PER DAY
  4. FLUTICASONE PROPIONATE/SALMETEROL [Suspect]
     Indication: ASTHMA
     Dosage: 1PUFF TWICE PER DAY
     Route: 055
     Dates: start: 20111007
  5. CHOLESTEROL REDUCING AGENT [Concomitant]

REACTIONS (4)
  - ASTHMA [None]
  - DRUG INEFFECTIVE [None]
  - DYSPNOEA [None]
  - PRODUCT QUALITY ISSUE [None]
